FAERS Safety Report 4273489-9 (Version None)
Quarter: 2004Q1

REPORT INFORMATION
  Report Type: 
  Country: None (occurrence: None)
  Receive Date: 20040119
  Receipt Date: 20040113
  Transmission Date: 20041129
  Serious: Yes (Other)
  Sender: FDA-Public Use
  Company Number: US-GLAXOSMITHKLINE-A0492919A

PATIENT
  Sex: Female

DRUGS (1)
  1. LOTRONEX [Suspect]
     Dosage: 1MG PER DAY
     Route: 048
     Dates: start: 20030401, end: 20030901

REACTIONS (1)
  - FAECALOMA [None]
